FAERS Safety Report 5977604-8 (Version None)
Quarter: 2008Q4

REPORT INFORMATION
  Report Type: 
  Country: None (occurrence: None)
  Receive Date: 20081124
  Receipt Date: 20081031
  Transmission Date: 20090506
  Serious: Yes (Other)
  Sender: FDA-Public Use
  Company Number: CF356949

PATIENT
  Age: 69 Year
  Sex: Female

DRUGS (1)
  1. BLINK TEARS LUBRICATING EYE DROPS [Suspect]
     Indication: DRY EYE
     Dosage: 1 OR 2 GTTS PRN
     Dates: start: 20081001, end: 20081031

REACTIONS (3)
  - CONDITION AGGRAVATED [None]
  - HERPES ZOSTER OPHTHALMIC [None]
  - PHOTOPHOBIA [None]
